FAERS Safety Report 18500848 (Version 3)
Quarter: 2020Q4

REPORT INFORMATION
  Report Type: Spontaneous
  Country: US (occurrence: US)
  Receive Date: 20201113
  Receipt Date: 20201217
  Transmission Date: 20210114
  Serious: Yes (Other)
  Sender: FDA-Public Use
  Company Number: US-ELI_LILLY_AND_COMPANY-US202011003631

PATIENT
  Age: 78 Year
  Sex: Female

DRUGS (5)
  1. TRADJENTA [Concomitant]
     Active Substance: LINAGLIPTIN
     Indication: TYPE 2 DIABETES MELLITUS
     Dosage: 5 MG, DAILY
  2. GLIPIZIDE. [Concomitant]
     Active Substance: GLIPIZIDE
     Indication: TYPE 2 DIABETES MELLITUS
     Dosage: 5 MG, DAILY
  3. HUMALOG MIX75/25 [Suspect]
     Active Substance: INSULIN LISPRO
     Indication: DIABETES MELLITUS
     Dosage: 14 U, BID
     Route: 058
  4. INSULIN LISPRO LILLY 25LIS75NPL KWIKPEN/MIRIOPEN [Suspect]
     Active Substance: INSULIN LISPRO
     Indication: TYPE 2 DIABETES MELLITUS
     Dosage: 14 U, EACH MORNING
     Route: 058
     Dates: start: 202006
  5. INSULIN LISPRO LILLY 25LIS75NPL KWIKPEN/MIRIOPEN [Suspect]
     Active Substance: INSULIN LISPRO
     Dosage: 10 U, EACH EVENING
     Route: 058
     Dates: start: 202006

REACTIONS (8)
  - Fall [Recovered/Resolved]
  - Eye injury [Unknown]
  - Scar [Unknown]
  - Eye swelling [Unknown]
  - Renal disorder [Unknown]
  - Incorrect dose administered [Unknown]
  - Myocardial infarction [Recovered/Resolved]
  - Visual impairment [Unknown]

NARRATIVE: CASE EVENT DATE: 20201211
